FAERS Safety Report 24112311 (Version 1)
Quarter: 2024Q3

REPORT INFORMATION
  Report Type: Report from Study
  Country: US (occurrence: None)
  Receive Date: 20240719
  Receipt Date: 20240719
  Transmission Date: 20241016
  Serious: Yes (Hospitalization)
  Sender: ASTRAZENECA
  Company Number: 2019SF14828

PATIENT
  Age: 21352 Day
  Sex: Male

DRUGS (2)
  1. TAGRISSO [Suspect]
     Active Substance: OSIMERTINIB
     Indication: Parkinson^s disease
     Route: 048
     Dates: start: 20190720
  2. TAGRISSO [Suspect]
     Active Substance: OSIMERTINIB
     Indication: Parkinson^s disease
     Route: 048

REACTIONS (4)
  - Pneumonia [Recovering/Resolving]
  - Deep vein thrombosis [Recovering/Resolving]
  - Cardiac failure [Recovering/Resolving]
  - Product dose omission issue [Unknown]

NARRATIVE: CASE EVENT DATE: 20190729
